FAERS Safety Report 4766391-7 (Version None)
Quarter: 2005Q3

REPORT INFORMATION
  Report Type: 
  Country: None (occurrence: None)
  Receive Date: 20050909
  Receipt Date: 29950826
  Transmission Date: 20060218
  Serious: Yes (Hospitalization, Other)
  Sender: FDA-Public Use
  Company Number: 217228

PATIENT
  Age: 56 Year
  Sex: Male

DRUGS (2)
  1. RAPTIVA [Suspect]
     Indication: PSORIASIS
     Dates: start: 20050713
  2. DILTIAZEM HYDROCHLORIDE [Concomitant]

REACTIONS (2)
  - ERYTHRODERMIC PSORIASIS [None]
  - PEMPHIGOID [None]
